FAERS Safety Report 25335835 (Version 1)
Quarter: 2025Q2

REPORT INFORMATION
  Report Type: Spontaneous
  Country: BR (occurrence: BR)
  Receive Date: 20250520
  Receipt Date: 20250520
  Transmission Date: 20250716
  Serious: Yes (Hospitalization, Other)
  Sender: SANDOZ
  Company Number: BR-002147023-NVSC2025BR080152

PATIENT
  Sex: Female

DRUGS (1)
  1. EXELON [Suspect]
     Active Substance: RIVASTIGMINE TARTRATE
     Indication: Senile dementia
     Dosage: 13.3 MG, QD (EXELON PATCH 15 (RIVASTIGMINE) PATCH, EXTENDED RELEASE, 27 MILLIGRAM)
     Route: 062

REACTIONS (11)
  - Anal fissure [Recovered/Resolved]
  - Lung disorder [Recovered/Resolved]
  - Nephrolithiasis [Recovered/Resolved]
  - Inflammation [Recovered/Resolved]
  - Diverticulitis [Recovered/Resolved]
  - Pyrexia [Recovered/Resolved]
  - Cardiac disorder [Recovered/Resolved]
  - Infection [Recovered/Resolved]
  - Gait disturbance [Recovered/Resolved]
  - Product use in unapproved indication [Recovered/Resolved]
  - Product use issue [Recovered/Resolved]
